FAERS Safety Report 4769071-7 (Version None)
Quarter: 2005Q3

REPORT INFORMATION
  Report Type: 
  Country: None (occurrence: None)
  Receive Date: 20050906
  Receipt Date: 20050517
  Transmission Date: 20060218
  Serious: No
  Sender: FDA-Public Use
  Company Number: 2005-BP-05912BP

PATIENT
  Age: 67 Year
  Sex: Male
  Weight: 81.6 kg

DRUGS (12)
  1. SPIRIVA [Suspect]
     Indication: CHRONIC OBSTRUCTIVE PULMONARY DISEASE
     Dosage: 18 MG (18 MG,QD), IH
     Route: 055
     Dates: start: 20040101
  2. SPIRIVA [Suspect]
  3. SPIRIVA [Suspect]
  4. OXYGEN (OXYGEN) [Concomitant]
  5. ATROVENT [Concomitant]
  6. ADVAIR DISKUS 100/50 [Concomitant]
  7. PREDNISONE [Concomitant]
  8. TIPZAC [Concomitant]
  9. LIPITOR [Concomitant]
  10. THEOPHYLLINE [Concomitant]
  11. ACETYLSALICYLIC ACID SRT [Concomitant]
  12. ALTACE [Concomitant]

REACTIONS (2)
  - DRUG INEFFECTIVE [None]
  - GENERAL PHYSICAL HEALTH DETERIORATION [None]
